FAERS Safety Report 8073921-9 (Version None)
Quarter: 2012Q1

REPORT INFORMATION
  Report Type: 
  Country: None (occurrence: None)
  Receive Date: 20120126
  Receipt Date: 20120112
  Transmission Date: 20120608
  Serious: Yes (Other)
  Sender: FDA-Public Use
  Company Number: CA-JNJFOC-20120111176

PATIENT
  Sex: Female
  Weight: 57 kg

DRUGS (6)
  1. CALCIUM [Concomitant]
  2. IMURAN [Concomitant]
  3. VITAMIN D [Concomitant]
  4. PANTOPRAZOLE SODIUM [Concomitant]
  5. OTHER THERAPEUTIC PRODUCT [Concomitant]
  6. REMICADE [Suspect]
     Indication: CROHN'S DISEASE
     Dates: start: 20071011

REACTIONS (1)
  - LOWER GASTROINTESTINAL HAEMORRHAGE [None]
